FAERS Safety Report 16024677 (Version 1)
Quarter: 2019Q1

REPORT INFORMATION
  Report Type: Report from Study
  Country: US (occurrence: US)
  Receive Date: 20190301
  Receipt Date: 20190301
  Transmission Date: 20190418
  Serious: Yes (Other)
  Sender: FDA-Public Use
  Company Number: US-JAZZ-2018-US-018727

PATIENT
  Age: 44 Year
  Sex: Male

DRUGS (43)
  1. XYREM [Suspect]
     Active Substance: SODIUM OXYBATE
     Indication: NARCOLEPSY
     Dosage: 2.25 G, BID
     Route: 048
     Dates: start: 201504, end: 201505
  2. PROVIGIL [Concomitant]
     Active Substance: MODAFINIL
  3. LASIX [Concomitant]
     Active Substance: FUROSEMIDE
  4. EXCEDRIN [Concomitant]
     Active Substance: ACETAMINOPHEN\ASPIRIN\CAFFEINE
  5. ATORVASTATIN [Concomitant]
     Active Substance: ATORVASTATIN
  6. HYDROCHLOROTHIAZIDE. [Concomitant]
     Active Substance: HYDROCHLOROTHIAZIDE
  7. DILTIAZEM. [Concomitant]
     Active Substance: DILTIAZEM
  8. HYDROXYZINE HCL [Concomitant]
     Active Substance: HYDROXYZINE HYDROCHLORIDE
  9. VITAMIN D3 [Concomitant]
     Active Substance: CHOLECALCIFEROL
  10. ISOSORBIDE. [Concomitant]
     Active Substance: ISOSORBIDE
  11. CETIRIZINE HCL [Concomitant]
     Active Substance: CETIRIZINE HYDROCHLORIDE
  12. TRIAMCINOLONE [Concomitant]
     Active Substance: TRIAMCINOLONE
  13. LEVOFLOXACIN. [Concomitant]
     Active Substance: LEVOFLOXACIN
  14. PREVIDENT [Concomitant]
     Active Substance: SODIUM FLUORIDE
  15. BUPROPION HCL [Concomitant]
     Active Substance: BUPROPION HYDROCHLORIDE
  16. EPIPEN [Concomitant]
     Active Substance: EPINEPHRINE
  17. LIPITOR [Concomitant]
     Active Substance: ATORVASTATIN CALCIUM
  18. VENLAFAXINE HCL [Concomitant]
     Active Substance: VENLAFAXINE HYDROCHLORIDE
  19. NUVIGIL [Concomitant]
     Active Substance: ARMODAFINIL
  20. CLINDAMYCIN HCL [Concomitant]
     Active Substance: CLINDAMYCIN HYDROCHLORIDE
  21. VITAMIN D [Concomitant]
     Active Substance: CHOLECALCIFEROL
  22. COREG [Concomitant]
     Active Substance: CARVEDILOL
  23. POTASSIUM CL [Concomitant]
     Active Substance: POTASSIUM CHLORIDE
  24. XYREM [Suspect]
     Active Substance: SODIUM OXYBATE
     Dosage: 2.25 G, BID
     Route: 048
     Dates: start: 201706, end: 201707
  25. XYREM [Suspect]
     Active Substance: SODIUM OXYBATE
     Dosage: DOSE ADJUSTMENT
     Route: 048
     Dates: start: 201707, end: 201710
  26. PREDNISONE. [Concomitant]
     Active Substance: PREDNISONE
  27. NITROGLYCERIN. [Concomitant]
     Active Substance: NITROGLYCERIN
  28. MODAFINIL. [Concomitant]
     Active Substance: MODAFINIL
  29. FISH OIL [Concomitant]
     Active Substance: FISH OIL
  30. LEVAQUIN [Concomitant]
     Active Substance: LEVOFLOXACIN
  31. XYREM [Suspect]
     Active Substance: SODIUM OXYBATE
     Dosage: 4.5 G, BID
     Route: 048
     Dates: start: 201710
  32. FUROSEMIDE. [Concomitant]
     Active Substance: FUROSEMIDE
  33. CARVEDILOL. [Concomitant]
     Active Substance: CARVEDILOL
  34. TAMSULOSIN HCL [Concomitant]
     Active Substance: TAMSULOSIN HYDROCHLORIDE
  35. XYREM [Suspect]
     Active Substance: SODIUM OXYBATE
     Indication: CATAPLEXY
     Dosage: 3 G, BID
     Route: 048
     Dates: start: 201505, end: 201609
  36. LISINOPRIL. [Concomitant]
     Active Substance: LISINOPRIL
  37. ASPIRIN 81 [Concomitant]
     Active Substance: ASPIRIN
  38. MAXZIDE [Concomitant]
     Active Substance: HYDROCHLOROTHIAZIDE\TRIAMTERENE
  39. NAPROXEN. [Concomitant]
     Active Substance: NAPROXEN
  40. CLOMIPHENE CITRATE. [Concomitant]
     Active Substance: CLOMIPHENE CITRATE
  41. NYSTATIN. [Concomitant]
     Active Substance: NYSTATIN
  42. TOPAMAX [Concomitant]
     Active Substance: TOPIRAMATE
  43. WELLBUTRIN [Concomitant]
     Active Substance: BUPROPION HYDROCHLORIDE

REACTIONS (1)
  - Dental operation [Unknown]

NARRATIVE: CASE EVENT DATE: 20181220
